FAERS Safety Report 20611409 (Version 1)
Quarter: 2022Q1

REPORT INFORMATION
  Report Type: Spontaneous
  Country: US (occurrence: None)
  Receive Date: 20220317
  Receipt Date: 20220317
  Transmission Date: 20220423
  Serious: No
  Sender: FDA-Public Use
  Company Number: None

PATIENT
  Sex: Female
  Weight: 150 kg

DRUGS (5)
  1. KISQALI [Suspect]
     Active Substance: RIBOCICLIB
     Indication: Breast cancer
     Dosage: OTHER FREQUENCY : QD 21 OF 28 DAYS;?
     Route: 048
  2. LETROZOLE [Concomitant]
     Active Substance: LETROZOLE
  3. VITAMIN D [Concomitant]
     Active Substance: VITAMIN D NOS
  4. IBUPROFEN [Concomitant]
     Active Substance: IBUPROFEN
  5. SM CRANBERRY [Concomitant]

REACTIONS (1)
  - Rash [None]
